FAERS Safety Report 4823675-1 (Version None)
Quarter: 2005Q4

REPORT INFORMATION
  Report Type: 
  Country: None (occurrence: None)
  Receive Date: 20051107
  Receipt Date: 20051028
  Transmission Date: 20060501
  Serious: Yes (Life-Threatening, Hospitalization)
  Sender: FDA-Public Use
  Company Number: CHWYE100631OCT05

PATIENT
  Age: 68 Year
  Sex: Male

DRUGS (10)
  1. TAZOBAC (PIPERACILLIN/TAZOBACTAM, INJECTION) [Suspect]
     Indication: ANTIBIOTIC PROPHYLAXIS
     Dosage: 4.5 G 3X PER 1 DAY
     Route: 040
     Dates: start: 20051009, end: 20051018
  2. SANDIMMUNE [Suspect]
     Indication: RENAL TRANSPLANT
     Dosage: 50 MG 2X PER 1 DAY
     Route: 048
     Dates: end: 20051011
  3. AZATHIOPRINE SODIUM [Concomitant]
  4. ASPIRIN [Concomitant]
  5. ZOCOR [Concomitant]
  6. NORVASC [Concomitant]
  7. CO-RENITEN (ENALAPRIL MALEATE/HYDROCHLOROTHIAZIDE) [Concomitant]
  8. NEXIUM [Concomitant]
  9. HEPARIN [Concomitant]
  10. ROCEPHIN [Concomitant]

REACTIONS (11)
  - CHOLESTASIS [None]
  - CONFUSIONAL STATE [None]
  - DRUG TOXICITY [None]
  - GENERAL PHYSICAL HEALTH DETERIORATION [None]
  - HAEMODIALYSIS [None]
  - IMMUNOSUPPRESSANT DRUG LEVEL INCREASED [None]
  - MYOCLONUS [None]
  - OLIGURIA [None]
  - OVERDOSE [None]
  - SOMNOLENCE [None]
  - TONIC CONVULSION [None]
